FAERS Safety Report 16923270 (Version 1)
Quarter: 2019Q4

REPORT INFORMATION
  Report Type: Spontaneous
  Country: US (occurrence: US)
  Receive Date: 20191016
  Receipt Date: 20191016
  Transmission Date: 20200122
  Serious: No
  Sender: FDA-Public Use
  Company Number: US-UNITED THERAPEUTICS-UNT-2019-016995

PATIENT
  Age: 67 Year
  Sex: Female

DRUGS (2)
  1. ORENITRAM [Suspect]
     Active Substance: TREPROSTINIL
     Indication: PULMONARY ARTERIAL HYPERTENSION
     Dosage: 1.375 MG, TID
     Route: 048
     Dates: start: 20190912
  2. ORENITRAM [Suspect]
     Active Substance: TREPROSTINIL
     Dosage: 1.50 MG, TID
     Route: 048
     Dates: start: 20191010, end: 20191010

REACTIONS (4)
  - Wrong dose [Unknown]
  - Headache [Unknown]
  - Faeces soft [Unknown]
  - Dyspepsia [Unknown]

NARRATIVE: CASE EVENT DATE: 2019
